FAERS Safety Report 20986132 (Version 1)
Quarter: 2022Q2

REPORT INFORMATION
  Report Type: Spontaneous
  Country: US (occurrence: None)
  Receive Date: 20220617
  Receipt Date: 20220617
  Transmission Date: 20220720
  Serious: No
  Sender: FDA-Public Use
  Company Number: None

PATIENT
  Age: 78 Year
  Sex: Female

DRUGS (1)
  1. CAPECITABINE [Suspect]
     Active Substance: CAPECITABINE
     Dosage: 500MG TAB; 2 TABS BID ORAL?
     Route: 048
     Dates: start: 202204

REACTIONS (3)
  - Anaemia [None]
  - Fatigue [None]
  - Haemoglobin decreased [None]

NARRATIVE: CASE EVENT DATE: 20220603
